FAERS Safety Report 7813222-4 (Version None)
Quarter: 2011Q4

REPORT INFORMATION
  Report Type: 
  Country: None (occurrence: None)
  Receive Date: 20111013
  Receipt Date: 20111004
  Transmission Date: 20120403
  Serious: Yes (Other)
  Sender: FDA-Public Use
  Company Number: JP-ASTRAZENECA-2011SE42659

PATIENT
  Age: 28 Year
  Sex: Female

DRUGS (4)
  1. CANDESARTAN CILEXETIL [Suspect]
     Indication: RENAL DISORDER
     Route: 048
  2. ESTRADIOL [Concomitant]
     Route: 048
  3. MEDROXYPROGESTERONE ACETATE [Concomitant]
     Route: 048
  4. TACROLIMUS [Concomitant]

REACTIONS (2)
  - OLIGOHYDRAMNIOS [None]
  - MATERNAL EXPOSURE DURING PREGNANCY [None]
